FAERS Safety Report 18175582 (Version 3)
Quarter: 2020Q3

REPORT INFORMATION
  Report Type: Report from Study
  Country: None (occurrence: US)
  Receive Date: 20200820
  Receipt Date: 20200921
  Transmission Date: 20201103
  Serious: Yes (Other)
  Sender: FDA-Public Use
  Company Number: US-ABBVIE-20K-163-3502118-00

PATIENT
  Sex: Female

DRUGS (3)
  1. HUMIRA [Suspect]
     Active Substance: ADALIMUMAB
     Indication: CROHN^S DISEASE
     Dosage: DAY 1
     Route: 058
     Dates: start: 20200608, end: 20200608
  2. HUMIRA [Suspect]
     Active Substance: ADALIMUMAB
     Dosage: DAY 15
     Route: 058
     Dates: start: 20200622, end: 20200622
  3. HUMIRA [Suspect]
     Active Substance: ADALIMUMAB
     Route: 058
     Dates: start: 2020

REACTIONS (19)
  - Immunodeficiency [Recovering/Resolving]
  - Loss of personal independence in daily activities [Unknown]
  - Depressed mood [Unknown]
  - Nausea [Unknown]
  - Impaired healing [Recovering/Resolving]
  - Insomnia [Unknown]
  - Abdominal pain [Not Recovered/Not Resolved]
  - Diarrhoea [Not Recovered/Not Resolved]
  - Endodontic procedure [Unknown]
  - Prognathism [Unknown]
  - Tooth extraction [Unknown]
  - Localised infection [Unknown]
  - Weight decreased [Unknown]
  - Feeling cold [Unknown]
  - Anxiety [Unknown]
  - Contusion [Unknown]
  - Therapeutic response shortened [Not Recovered/Not Resolved]
  - Impaired healing [Not Recovered/Not Resolved]
  - Pain in jaw [Unknown]

NARRATIVE: CASE EVENT DATE: 2020
